FAERS Safety Report 13581453 (Version 1)
Quarter: 2017Q2

REPORT INFORMATION
  Report Type: Spontaneous
  Country: ES (occurrence: ES)
  Receive Date: 20170525
  Receipt Date: 20170525
  Transmission Date: 20170830
  Serious: Yes (Death, Hospitalization, Congenital Anomaly, Other)
  Sender: FDA-Public Use
  Company Number: ES-GLAXOSMITHKLINE-ES2017075933

PATIENT

DRUGS (3)
  1. LABILENO [Suspect]
     Active Substance: LAMOTRIGINE
     Indication: HEADACHE
  2. LYRICA [Concomitant]
     Active Substance: PREGABALIN
     Indication: MIGRAINE
     Dosage: 150 MG, BID, 100
     Route: 064
     Dates: start: 20121210, end: 201702
  3. LABILENO [Suspect]
     Active Substance: LAMOTRIGINE
     Indication: SEIZURE
     Dosage: 100 MG, TID, 56 TABLETS
     Route: 064
     Dates: start: 1997

REACTIONS (5)
  - Maternal drugs affecting foetus [None]
  - Cystic lymphangioma [Unknown]
  - Tricuspid valve incompetence [Unknown]
  - Foetal exposure during pregnancy [Unknown]
  - Ventricular hypoplasia [Fatal]

NARRATIVE: CASE EVENT DATE: 20170419
